FAERS Safety Report 22620957 (Version 1)
Quarter: 2023Q2

REPORT INFORMATION
  Report Type: Spontaneous
  Country: US (occurrence: None)
  Receive Date: 20230616
  Receipt Date: 20230616
  Transmission Date: 20230722
  Serious: No
  Sender: FDA-Public Use
  Company Number: None

PATIENT
  Sex: Male

DRUGS (14)
  1. ABIRATERONE ACETATE [Suspect]
     Active Substance: ABIRATERONE ACETATE
     Indication: Prostate cancer
     Dosage: FREQUENCY : DAILY;?
     Route: 048
  2. AMLODIPINE [Concomitant]
     Active Substance: AMLODIPINE BESYLATE
  3. ASPIRIN [Concomitant]
     Active Substance: ASPIRIN
  4. ATORVASTATIN [Concomitant]
     Active Substance: ATORVASTATIN
  5. ATROPINE [Concomitant]
     Active Substance: ATROPINE
  6. AZELASTINE [Concomitant]
     Active Substance: AZELASTINE
  7. BICALUTAMIDE [Concomitant]
     Active Substance: BICALUTAMIDE
  8. EDARBYCLOR [Concomitant]
     Active Substance: AZILSARTAN KAMEDOXOMIL\CHLORTHALIDONE
  9. FLONASE [Concomitant]
     Active Substance: FLUTICASONE PROPIONATE
  10. GLIMEPIRIDE [Concomitant]
     Active Substance: GLIMEPIRIDE
  11. LATANOPROST [Concomitant]
  12. METFORMIN [Concomitant]
     Active Substance: METFORMIN HYDROCHLORIDE
  13. TRELSTAR [Concomitant]
  14. ZYTIGA [Concomitant]

REACTIONS (2)
  - Therapy cessation [None]
  - Disease progression [None]
